FAERS Safety Report 15083760 (Version 2)
Quarter: 2018Q3

REPORT INFORMATION
  Report Type: Spontaneous
  Country: FI (occurrence: FI)
  Receive Date: 20180628
  Receipt Date: 20180714
  Transmission Date: 20181010
  Serious: Yes (Hospitalization, Other)
  Sender: FDA-Public Use
  Company Number: FI-TEVA-2018-FI-914709

PATIENT
  Age: 68 Year
  Sex: Male

DRUGS (24)
  1. DIAPAM (DIAZEPAM) [Suspect]
     Active Substance: DIAZEPAM
     Dosage: 5MG+5MG+10MG
     Route: 065
     Dates: start: 20180129, end: 20180201
  2. RISPERIDON ORION [Suspect]
     Active Substance: RISPERIDONE
     Dosage: 2 MILLIGRAM DAILY;
     Route: 065
     Dates: start: 20180124
  3. ZYPREXA [Suspect]
     Active Substance: OLANZAPINE
     Indication: PRODUCT USED FOR UNKNOWN INDICATION
     Route: 065
     Dates: start: 20180126
  4. RISPERIDONE. [Suspect]
     Active Substance: RISPERIDONE
     Dosage: 1 MILLIGRAM DAILY;
     Route: 065
     Dates: start: 20180127, end: 20180129
  5. OLANZAPINE. [Suspect]
     Active Substance: OLANZAPINE
     Route: 065
     Dates: start: 20180201
  6. RISPERIDON ORION [Suspect]
     Active Substance: RISPERIDONE
     Route: 065
     Dates: start: 20180102
  7. RISPERIDONE. [Suspect]
     Active Substance: RISPERIDONE
     Indication: HALLUCINATION, VISUAL
     Dosage: 3 MILLIGRAM DAILY;
     Route: 065
     Dates: start: 20180115
  8. OLANZAPINE. [Suspect]
     Active Substance: OLANZAPINE
     Dosage: 10 MILLIGRAM DAILY;
     Route: 065
     Dates: start: 20180124
  9. ATIVAN [Suspect]
     Active Substance: LORAZEPAM
     Indication: PRODUCT USED FOR UNKNOWN INDICATION
     Dosage: 2 MG, UNK (RESTLESS, DELUSIONAL)
     Route: 065
     Dates: start: 20180129
  10. SERENASE (HALOPERIDOL) [Suspect]
     Active Substance: HALOPERIDOL
     Route: 065
     Dates: start: 20180126
  11. ATIVAN [Suspect]
     Active Substance: LORAZEPAM
     Route: 065
     Dates: start: 20180126
  12. ATIVAN [Suspect]
     Active Substance: LORAZEPAM
     Dosage: 2 MG, TID (0,5+0,5+1)
     Route: 065
     Dates: start: 20180104
  13. SERENASE (HALOPERIDOL) [Suspect]
     Active Substance: HALOPERIDOL
     Indication: PRODUCT USED FOR UNKNOWN INDICATION
     Dosage: 5 MILLIGRAM DAILY;
     Route: 065
     Dates: start: 20180129
  14. OLANZAPIN ORION [Suspect]
     Active Substance: OLANZAPINE
     Route: 065
     Dates: start: 20180131, end: 20180203
  15. LORAZEPAM. [Suspect]
     Active Substance: LORAZEPAM
     Dosage: 0.5+0.5+1MG
     Route: 065
     Dates: start: 20180201
  16. LORAZEPAM. [Suspect]
     Active Substance: LORAZEPAM
     Route: 065
     Dates: start: 20180126
  17. RISPERIDON ORION [Suspect]
     Active Substance: RISPERIDONE
     Indication: HALLUCINATION, VISUAL
     Dosage: 3 MG, BID (1+0+2 MG)
     Route: 065
     Dates: start: 20180107
  18. DIAPAM (DIAZEPAM) [Suspect]
     Active Substance: DIAZEPAM
     Indication: PRODUCT USED FOR UNKNOWN INDICATION
     Dosage: 30 MILLIGRAM DAILY;
     Route: 065
  19. DIAPAM (DIAZEPAM) [Suspect]
     Active Substance: DIAZEPAM
     Dosage: 15 MILLIGRAM DAILY;
     Route: 065
  20. RISPERIDONE. [Suspect]
     Active Substance: RISPERIDONE
     Dosage: 1 MILLIGRAM DAILY;
     Route: 065
     Dates: start: 20171231
  21. OLANZAPINE. [Suspect]
     Active Substance: OLANZAPINE
     Indication: HALLUCINATION, VISUAL
     Dosage: 6 MILLIGRAM DAILY;
     Route: 065
     Dates: start: 20180203
  22. RISPERIDON ORION [Suspect]
     Active Substance: RISPERIDONE
     Dosage: 4 MG, BID (1+0+3 MG)
     Route: 065
     Dates: start: 20180114
  23. RISPERIDON ORION [Suspect]
     Active Substance: RISPERIDONE
     Dosage: 1 MILLIGRAM DAILY; 1 MG, QD (IN THE EVENINGS)
     Route: 065
     Dates: start: 20171231
  24. ATIVAN [Suspect]
     Active Substance: LORAZEPAM
     Dosage: 3 MILLIGRAM DAILY;
     Route: 065
     Dates: start: 20180107

REACTIONS (5)
  - Hallucination [Recovering/Resolving]
  - Parkinson^s disease [Recovering/Resolving]
  - Dementia with Lewy bodies [Recovering/Resolving]
  - Vascular dementia [Recovering/Resolving]
  - Balance disorder [Recovering/Resolving]
